FAERS Safety Report 9228141 (Version 2)
Quarter: 2013Q2

REPORT INFORMATION
  Report Type: Report from Study
  Country: US (occurrence: US)
  Receive Date: 20130412
  Receipt Date: 20130520
  Transmission Date: 20140414
  Serious: Yes (Hospitalization)
  Sender: FDA-Public Use
  Company Number: US-ROCHE-1209871

PATIENT
  Age: 40 Year
  Sex: Male

DRUGS (2)
  1. ALTEPLASE [Suspect]
     Indication: DEEP VEIN THROMBOSIS
     Route: 065
  2. HEPARIN [Suspect]
     Indication: DEEP VEIN THROMBOSIS
     Route: 065

REACTIONS (6)
  - Haematocrit decreased [Unknown]
  - Amylase increased [Unknown]
  - Retroperitoneal haematoma [Unknown]
  - Haemorrhage [Unknown]
  - Purulent discharge [Unknown]
  - Pancreatic necrosis [Recovered/Resolved]
